FAERS Safety Report 8176726-3 (Version None)
Quarter: 2012Q1

REPORT INFORMATION
  Report Type: 
  Country: None (occurrence: None)
  Receive Date: 20120301
  Receipt Date: 20120224
  Transmission Date: 20120608
  Serious: Yes (Other)
  Sender: FDA-Public Use
  Company Number: US-PFIZER INC-2012051140

PATIENT
  Sex: Male
  Weight: 110.2 kg

DRUGS (1)
  1. LIPITOR [Suspect]
     Indication: HYPERLIPIDAEMIA
     Dosage: 80 MG, 1X/DAY (AT BED TIME)
     Route: 048

REACTIONS (8)
  - CORONARY ARTERY DISEASE [None]
  - HYPERLIPIDAEMIA [None]
  - ABDOMINAL HERNIA [None]
  - CARDIAC FAILURE [None]
  - PAIN IN EXTREMITY [None]
  - HYPOACUSIS [None]
  - MYOCARDIAL INFARCTION [None]
  - HYPERTENSION [None]
